FAERS Safety Report 11646739 (Version 1)
Quarter: 2015Q4

REPORT INFORMATION
  Report Type: Spontaneous
  Country: US (occurrence: US)
  Receive Date: 20151020
  Receipt Date: 20151020
  Transmission Date: 20160304
  Serious: No
  Sender: FDA-Public Use
  Company Number: US-ROCHE-ITM201504IM014983

PATIENT
  Age: 70 Year
  Sex: Female
  Weight: 75 kg

DRUGS (3)
  1. ESBRIET [Suspect]
     Active Substance: PIRFENIDONE
     Indication: IDIOPATHIC PULMONARY FIBROSIS
     Dosage: 2403 MG
     Route: 048
     Dates: start: 20150326
  2. WARFARIN [Concomitant]
     Active Substance: WARFARIN
  3. ESBRIET [Suspect]
     Active Substance: PIRFENIDONE
     Route: 065
     Dates: start: 20150616

REACTIONS (5)
  - Mental disorder [Unknown]
  - Joint swelling [Unknown]
  - Confusional state [Recovered/Resolved]
  - International normalised ratio decreased [Not Recovered/Not Resolved]
  - Oedema peripheral [Not Recovered/Not Resolved]

NARRATIVE: CASE EVENT DATE: 201506
